FAERS Safety Report 9517665 (Version 2)
Quarter: 2013Q4

REPORT INFORMATION
  Report Type: Report from Study
  Country: DE (occurrence: DE)
  Receive Date: 20130912
  Receipt Date: 20131011
  Transmission Date: 20140711
  Serious: Yes (Hospitalization, Other)
  Sender: FDA-Public Use
  Company Number: DE-BIOGENIDEC-2013BI084436

PATIENT
  Age: 39 Year
  Sex: Male

DRUGS (6)
  1. TYSABRI [Suspect]
     Indication: RELAPSING-REMITTING MULTIPLE SCLEROSIS
     Dates: start: 20110531, end: 20130503
  2. GILENYA [Concomitant]
     Indication: MULTIPLE SCLEROSIS
     Dates: start: 20130708
  3. IBUPROFEN [Concomitant]
     Indication: HEADACHE
     Dates: start: 20110418
  4. VIGANTOLETTEN [Concomitant]
     Indication: VITAMIN D DEFICIENCY
     Dates: start: 20120413
  5. CITALOPRAM [Concomitant]
  6. MIRTAZAPIN [Concomitant]
     Dates: start: 201205

REACTIONS (1)
  - Epilepsy [Recovered/Resolved]
